FAERS Safety Report 4602120-5 (Version None)
Quarter: 2005Q1

REPORT INFORMATION
  Report Type: 
  Country: None (occurrence: None)
  Receive Date: 20050214
  Receipt Date: 20040510
  Transmission Date: 20050727
  Serious: Yes (Other)
  Sender: FDA-Public Use
  Company Number: 8004838

PATIENT
  Age: 40 Year
  Sex: Female

DRUGS (4)
  1. KEPPRA [Suspect]
     Indication: CONVULSION
     Dosage: 2500 MG PO
     Route: 048
     Dates: start: 20010911, end: 20040301
  2. SYNTHROID [Concomitant]
  3. CLONAZEPAM [Concomitant]
  4. ACTONEL [Concomitant]

REACTIONS (11)
  - ABNORMAL DREAMS [None]
  - ASTHENIA [None]
  - DIARRHOEA [None]
  - DISTURBANCE IN ATTENTION [None]
  - FATIGUE [None]
  - INFLUENZA LIKE ILLNESS [None]
  - INSOMNIA [None]
  - IRRITABILITY [None]
  - SUICIDAL IDEATION [None]
  - SUICIDE ATTEMPT [None]
  - VISUAL DISTURBANCE [None]
